FAERS Safety Report 12915883 (Version 2)
Quarter: 2016Q4

REPORT INFORMATION
  Report Type: Spontaneous
  Country: US (occurrence: US)
  Receive Date: 20161107
  Receipt Date: 20161121
  Transmission Date: 20170207
  Serious: No
  Sender: FDA-Public Use
  Company Number: US-ALEXION PHARMACEUTICALS INC.-A201608361

PATIENT
  Sex: Male

DRUGS (1)
  1. SOLIRIS [Suspect]
     Active Substance: ECULIZUMAB
     Indication: PAROXYSMAL NOCTURNAL HAEMOGLOBINURIA
     Route: 042

REACTIONS (14)
  - Blood creatinine abnormal [Recovered/Resolved]
  - Haematocrit abnormal [Recovered/Resolved]
  - Platelet count abnormal [Recovered/Resolved]
  - Lymphocyte count abnormal [Recovered/Resolved]
  - Platelet count abnormal [Recovered/Resolved]
  - White blood cell count abnormal [Recovered/Resolved]
  - Haemoglobin abnormal [Recovered/Resolved]
  - Red blood cell count abnormal [Recovered/Resolved]
  - Anion gap abnormal [Recovered/Resolved]
  - Haematocrit abnormal [Recovered/Resolved]
  - White blood cell count abnormal [Recovered/Resolved]
  - Neutrophil count abnormal [Recovered/Resolved]
  - Lymphocyte count abnormal [Recovered/Resolved]
  - Haemoglobin abnormal [Recovered/Resolved]

NARRATIVE: CASE EVENT DATE: 20161027
